FAERS Safety Report 7113666-2 (Version None)
Quarter: 2010Q4

REPORT INFORMATION
  Report Type: 
  Country: None (occurrence: None)
  Receive Date: 20101119
  Receipt Date: 20101108
  Transmission Date: 20110411
  Serious: Yes (Other)
  Sender: FDA-Public Use
  Company Number: PHEH2009US17784

PATIENT
  Age: 66 Year
  Sex: Male
  Weight: 100 kg

DRUGS (11)
  1. GLEEVEC [Suspect]
     Indication: CHRONIC MYELOID LEUKAEMIA
     Dosage: 400 MG, DAILY
     Route: 048
     Dates: start: 20070913
  2. PROTEASE [Concomitant]
  3. ZINC [Concomitant]
  4. REGLAN [Concomitant]
     Indication: GASTROOESOPHAGEAL REFLUX DISEASE
  5. METFORMIN HYDROCHLORIDE [Concomitant]
  6. ATENOLOL [Concomitant]
  7. LIPITOR [Concomitant]
  8. DIPYRIDAMOLE [Concomitant]
  9. VITAMIN D3 [Concomitant]
  10. GLUCOPHAGE [Concomitant]
  11. ALBUTEROL [Concomitant]

REACTIONS (7)
  - ASTHMA [None]
  - DIARRHOEA [None]
  - DYSPNOEA [None]
  - MUSCLE SPASMS [None]
  - MYALGIA [None]
  - NAUSEA [None]
  - VOMITING [None]
